FAERS Safety Report 11870418 (Version 3)
Quarter: 2018Q2

REPORT INFORMATION
  Report Type: Spontaneous
  Country: US (occurrence: US)
  Receive Date: 20151228
  Receipt Date: 20180406
  Transmission Date: 20180711
  Serious: Yes (Other)
  Sender: FDA-Public Use
  Company Number: US-SA-2014SA171600

PATIENT
  Sex: Female

DRUGS (6)
  1. COUMADIN [Suspect]
     Active Substance: WARFARIN SODIUM
     Route: 065
  2. PLAVIX [Suspect]
     Active Substance: CLOPIDOGREL BISULFATE
     Route: 065
  3. FEXOFENADINE [Concomitant]
     Active Substance: FEXOFENADINE\FEXOFENADINE HYDROCHLORIDE
  4. ELIQUIS [Suspect]
     Active Substance: APIXABAN
     Indication: ATRIAL FIBRILLATION
     Dosage: STRENGTH: 5MG.
     Route: 048
  5. WARFARIN [Concomitant]
     Active Substance: WARFARIN
  6. XARELTO [Concomitant]
     Active Substance: RIVAROXABAN

REACTIONS (21)
  - Sinusitis [Unknown]
  - Feeling abnormal [Unknown]
  - Skin haemorrhage [Unknown]
  - Hypertension [Unknown]
  - Insomnia [Unknown]
  - Pain [Unknown]
  - Hypotension [Unknown]
  - Nasopharyngitis [Unknown]
  - Body temperature decreased [Unknown]
  - Headache [Not Recovered/Not Resolved]
  - Conduction disorder [Unknown]
  - Eye pain [Unknown]
  - Dry eye [Unknown]
  - Skin disorder [Unknown]
  - Anxiety [Unknown]
  - Nasal congestion [Unknown]
  - Tremor [Unknown]
  - Pruritus generalised [Recovering/Resolving]
  - Urinary incontinence [Unknown]
  - Peripheral swelling [Unknown]
  - Rash [Unknown]
